FAERS Safety Report 8954835 (Version 1)
Quarter: 2012Q4

REPORT INFORMATION
  Report Type: 
  Country: NO (occurrence: NO)
  Receive Date: 20121207
  Receipt Date: 20121207
  Transmission Date: 20130627
  Serious: Yes (Hospitalization, Other)
  Sender: FDA-Public Use
  Company Number: NO-ABBOTT-12P-122-1015677-00

PATIENT
  Age: 32 None
  Sex: Female
  Weight: 73 kg

DRUGS (7)
  1. MERIDIA [Suspect]
     Indication: OVERWEIGHT
     Dates: start: 200705
  2. MERIDIA [Suspect]
     Dates: start: 200904, end: 20091221
  3. CIPRAMIL [Concomitant]
     Indication: DEPRESSION
  4. CIPRAMIL [Concomitant]
     Dosage: increased to 60mg
  5. PARALGIN FORTE [Concomitant]
     Indication: PRODUCT USED FOR UNKNOWN INDICATION
  6. IMOVANE [Concomitant]
     Indication: PRODUCT USED FOR UNKNOWN INDICATION
  7. PLAVIX [Concomitant]
     Indication: PRODUCT USED FOR UNKNOWN INDICATION

REACTIONS (37)
  - Peripheral embolism [Unknown]
  - Acute myocardial infarction [Unknown]
  - Pain in extremity [Unknown]
  - Peripheral embolism [Unknown]
  - Serotonin syndrome [Unknown]
  - Acute tonsillitis [Recovered/Resolved]
  - Vomiting [Unknown]
  - Diarrhoea [Unknown]
  - Headache [Recovering/Resolving]
  - Asthenia [Unknown]
  - Pharyngeal erythema [Unknown]
  - Lymphadenopathy [Unknown]
  - Job dissatisfaction [Unknown]
  - Fatigue [Unknown]
  - Depression [Unknown]
  - Pain [Unknown]
  - Flank pain [Unknown]
  - Abdominal pain upper [Unknown]
  - Abdominal pain lower [Unknown]
  - Abdominal pain lower [Unknown]
  - Vaginal haemorrhage [Unknown]
  - Uterine polyp [Unknown]
  - Uterine pain [Unknown]
  - Pain in jaw [Unknown]
  - Abdominal pain lower [Unknown]
  - Pain [Unknown]
  - Vaginal haemorrhage [Unknown]
  - Swelling [Unknown]
  - Limb crushing injury [Unknown]
  - Ligament injury [Unknown]
  - Oropharyngeal pain [Unknown]
  - Pyrexia [Recovered/Resolved]
  - Sepsis [Unknown]
  - Embolism [Unknown]
  - Drug interaction [Unknown]
  - Disseminated intravascular coagulation [Unknown]
  - Embolism [Unknown]
